FAERS Safety Report 14661058 (Version 2)
Quarter: 2018Q2

REPORT INFORMATION
  Report Type: Report from Study
  Country: US (occurrence: US)
  Receive Date: 20180320
  Receipt Date: 20180509
  Transmission Date: 20180711
  Serious: No
  Sender: FDA-Public Use
  Company Number: PHEH2018US010812

PATIENT
  Age: 66 Year
  Sex: Female
  Weight: 81.64 kg

DRUGS (1)
  1. COSENTYX [Suspect]
     Active Substance: SECUKINUMAB
     Indication: PSORIATIC ARTHROPATHY
     Dosage: 150 MG, BIW
     Route: 058

REACTIONS (3)
  - Injury [Unknown]
  - Inappropriate schedule of drug administration [Unknown]
  - Bronchitis [Unknown]

NARRATIVE: CASE EVENT DATE: 20180426
